FAERS Safety Report 26075492 (Version 1)
Quarter: 2025Q4

REPORT INFORMATION
  Report Type: Spontaneous
  Country: US (occurrence: None)
  Receive Date: 20251120
  Receipt Date: 20251120
  Transmission Date: 20260117
  Serious: Yes (Hospitalization)
  Sender: FDA-CTU
  Company Number: None

PATIENT
  Age: 81 Year
  Sex: Female

DRUGS (1)
  1. TERIPARATIDE [Suspect]
     Active Substance: TERIPARATIDE
     Indication: Senile osteoporosis
     Dosage: FREQUENCY : DAILY;?STRENGTH: 250MCG/ML
     Route: 058
     Dates: start: 20241212

REACTIONS (2)
  - Enzyme level increased [None]
  - Arteriospasm coronary [None]

NARRATIVE: CASE EVENT DATE: 20251014
